FAERS Safety Report 24576538 (Version 1)
Quarter: 2024Q4

REPORT INFORMATION
  Report Type: Spontaneous
  Country: US (occurrence: None)
  Receive Date: 20241103
  Receipt Date: 20241103
  Transmission Date: 20250114
  Serious: Yes (Disabling)
  Sender: Public
  Company Number: None

PATIENT
  Age: 33 Year
  Sex: Female
  Weight: 76.5 kg

DRUGS (2)
  1. SKYRIZI [Suspect]
     Active Substance: RISANKIZUMAB-RZAA
     Indication: Crohn^s disease
     Route: 042
  2. GABAPENTIN [Suspect]
     Active Substance: GABAPENTIN

REACTIONS (5)
  - Contusion [None]
  - Pain in extremity [None]
  - Gait disturbance [None]
  - Feeling abnormal [None]
  - Impaired work ability [None]

NARRATIVE: CASE EVENT DATE: 20241007
